FAERS Safety Report 9375879 (Version 1)
Quarter: 2013Q2

REPORT INFORMATION
  Report Type: Report from Study
  Country: US (occurrence: US)
  Receive Date: 20130628
  Receipt Date: 20130628
  Transmission Date: 20140414
  Serious: Yes (Other)
  Sender: FDA-Public Use
  Company Number: US-US-EMD SERONO, INC.-7220491

PATIENT
  Sex: Female

DRUGS (2)
  1. REBIF [Suspect]
     Indication: MULTIPLE SCLEROSIS
     Route: 058
     Dates: end: 2012
  2. REBIF [Suspect]
     Route: 058
     Dates: start: 20130329

REACTIONS (4)
  - Kidney infection [Unknown]
  - Malaise [Unknown]
  - Pyrexia [Not Recovered/Not Resolved]
  - Injection site erythema [Not Recovered/Not Resolved]
